FAERS Safety Report 16764616 (Version 1)
Quarter: 2019Q3

REPORT INFORMATION
  Report Type: Spontaneous
  Country: MX (occurrence: MX)
  Receive Date: 20190902
  Receipt Date: 20190902
  Transmission Date: 20191005
  Serious: Yes (Other)
  Sender: FDA-Public Use
  Company Number: MX-009507513-1909MEX000544

PATIENT
  Age: 87 Year
  Sex: Female
  Weight: 54 kg

DRUGS (9)
  1. PANTOZOL [Concomitant]
     Active Substance: PANTOPRAZOLE SODIUM
     Indication: PROPHYLAXIS
     Dosage: 40 MILLIGRAM, EVERY 24 HOURS, UNDER MEDICAL PRESCRIPTION
     Route: 042
     Dates: start: 20190731
  2. FUROSEMIDE. [Concomitant]
     Active Substance: FUROSEMIDE
     Dosage: 40 MILLIGRAM, EVERY 8 HOURS, PER MEDICAL PRESCRIPTION
     Route: 042
     Dates: start: 20190731
  3. HYDROCORTISONE. [Concomitant]
     Active Substance: HYDROCORTISONE
     Dosage: 50 MILLIGRAM, EVERY 24 HOURS, UNDER MEDICAL PRESCRIPTION
     Route: 042
     Dates: start: 20190731, end: 20190803
  4. NOREPINEPHRINE. [Concomitant]
     Active Substance: NOREPINEPHRINE
     Indication: ANAEMIA
  5. INVANZ [Suspect]
     Active Substance: ERTAPENEM SODIUM
     Indication: ANTIBIOTIC THERAPY
     Dosage: 500 MILLIGRAM, EVERY 24 HOURS
     Route: 042
     Dates: start: 20190731
  6. ONDANSETRON [Concomitant]
     Active Substance: ONDANSETRON
     Indication: NAUSEA
     Dosage: 4 MILLIGRAM, EVERY 8 HOURS IN CASE OF GRADE II NAUSEA, UNDER MEDICAL PRESCRIPTION
     Route: 042
     Dates: start: 20190731
  7. NOREPINEPHRINE. [Concomitant]
     Active Substance: NOREPINEPHRINE
     Indication: GASTROINTESTINAL HAEMORRHAGE
  8. A S COR [Concomitant]
     Indication: BLOOD PRESSURE ABNORMAL
     Dosage: 15 GTT DROPS, EVERY 8 HOURS, UNDER MEDICAL PRESCRIPTION
     Route: 048
     Dates: start: 20190731
  9. PROCORALAN [Concomitant]
     Active Substance: IVABRADINE
     Indication: CARDIAC FAILURE
     Dosage: 5 MILLIGRAM, EVERY 12 HOURS, UNDER MEDICAL PRESCRIPTION
     Route: 048
     Dates: start: 20190731

REACTIONS (1)
  - Intensive care unit delirium [Not Recovered/Not Resolved]

NARRATIVE: CASE EVENT DATE: 20190802
